FAERS Safety Report 18160978 (Version 2)
Quarter: 2020Q4

REPORT INFORMATION
  Report Type: Spontaneous
  Country: TR (occurrence: TR)
  Receive Date: 20200817
  Receipt Date: 20201015
  Transmission Date: 20210113
  Serious: Yes (Hospitalization)
  Sender: FDA-Public Use
  Company Number: TR-GILEAD-2020-0490357

PATIENT
  Age: 58 Year
  Sex: Male

DRUGS (9)
  1. VEMLIDY [Suspect]
     Active Substance: TENOFOVIR ALAFENAMIDE FUMARATE
     Indication: HEPATITIS B
     Dosage: UNK
     Route: 065
  2. CORASPIN [Concomitant]
     Active Substance: ASPIRIN
  3. OMEPROL [OMEPRAZOLE] [Concomitant]
  4. URSO [Concomitant]
     Active Substance: URSODIOL
  5. ENOXAPARIN [Concomitant]
     Active Substance: ENOXAPARIN
  6. FUROSEMIDE. [Concomitant]
     Active Substance: FUROSEMIDE
  7. PROGRAF [Concomitant]
     Active Substance: TACROLIMUS
  8. CERTICAN [Concomitant]
     Active Substance: EVEROLIMUS
  9. IMURAN [Concomitant]
     Active Substance: AZATHIOPRINE

REACTIONS (5)
  - Cardiac disorder [Unknown]
  - Dyspnoea exertional [Unknown]
  - Oedema peripheral [Recovered/Resolved]
  - Peripheral swelling [Unknown]
  - Cystitis noninfective [Unknown]

NARRATIVE: CASE EVENT DATE: 20200626
